FAERS Safety Report 4475716-1 (Version None)
Quarter: 2004Q3

REPORT INFORMATION
  Report Type: 
  Country: None (occurrence: None)
  Receive Date: 20040923
  Receipt Date: 20040628
  Transmission Date: 20050211
  Serious: No
  Sender: FDA-Public Use
  Company Number: USA040670854

PATIENT
  Age: 82 Year
  Sex: Female
  Weight: 58 kg

DRUGS (10)
  1. FORTEO [Suspect]
     Indication: OSTEOPOROSIS
     Dosage: 20 UG DAY
     Dates: start: 20040616
  2. EVISTA [Concomitant]
  3. SYNTHROID [Concomitant]
  4. ATENOLOL [Concomitant]
  5. LASIX [Concomitant]
  6. CALCIUM AND VITAMIN D [Concomitant]
  7. VITAMIN E [Concomitant]
  8. MULTIVITAMIN [Concomitant]
  9. PEPCID AC [Concomitant]
  10. FOSAMAX [Concomitant]

REACTIONS (7)
  - BACK PAIN [None]
  - DIZZINESS [None]
  - HEADACHE [None]
  - HEART RATE INCREASED [None]
  - MUSCLE CRAMP [None]
  - NERVOUSNESS [None]
  - PAIN [None]
